FAERS Safety Report 13761755 (Version 3)
Quarter: 2017Q3

REPORT INFORMATION
  Report Type: Spontaneous
  Country: CN (occurrence: CN)
  Receive Date: 20170718
  Receipt Date: 20170721
  Transmission Date: 20171127
  Serious: Yes (Hospitalization)
  Sender: FDA-Public Use
  Company Number: CN-ASTRAZENECA-2017SE68350

PATIENT
  Age: 59 Year
  Sex: Female

DRUGS (4)
  1. CEPHALOSPORIN C [Concomitant]
     Active Substance: CEPHALOSPORIN C
  2. SYMBICORT [Suspect]
     Active Substance: BUDESONIDE\FORMOTEROL FUMARATE DIHYDRATE
     Indication: ASTHMA
     Dosage: 160 MCG, TWO TIMES A DAY
     Route: 055
  3. SYMBICORT [Suspect]
     Active Substance: BUDESONIDE\FORMOTEROL FUMARATE DIHYDRATE
     Indication: ASTHMA
     Dosage: 160 MCG, DAILY
     Route: 055
  4. SYMBICORT [Suspect]
     Active Substance: BUDESONIDE\FORMOTEROL FUMARATE DIHYDRATE
     Indication: ASTHMA
     Dosage: 160 MCG, THREE TIMES A DAY
     Route: 055

REACTIONS (5)
  - Weight increased [Unknown]
  - Dysgeusia [Unknown]
  - Overdose [Unknown]
  - Asthma [Unknown]
  - Nasopharyngitis [Recovered/Resolved]
